FAERS Safety Report 6655664-9 (Version None)
Quarter: 2010Q1

REPORT INFORMATION
  Report Type: 
  Country: None (occurrence: None)
  Receive Date: 20100329
  Receipt Date: 20100318
  Transmission Date: 20100710
  Serious: Yes (Life-Threatening, Hospitalization)
  Sender: FDA-Public Use
  Company Number: ES-GENENTECH-299561

PATIENT
  Age: 36 Year
  Sex: Female

DRUGS (1)
  1. MABTHERA [Suspect]
     Indication: RHEUMATOID ARTHRITIS
     Dosage: 1000 MG, Q14D
     Route: 042

REACTIONS (4)
  - ABDOMINAL WALL HAEMATOMA [None]
  - CHOLECYSTITIS [None]
  - CHOLELITHIASIS [None]
  - SEPTIC SHOCK [None]
